FAERS Safety Report 10615021 (Version 1)
Quarter: 2014Q4

REPORT INFORMATION
  Report Type: Report from Study
  Country: NL (occurrence: NL)
  Receive Date: 20141201
  Receipt Date: 20141201
  Transmission Date: 20150529
  Serious: Yes (Death)
  Sender: FDA-Public Use
  Company Number: NL-AMGEN-NLDSL2014092302

PATIENT
  Age: 81 Year
  Sex: Male

DRUGS (1)
  1. ARANESP [Suspect]
     Active Substance: DARBEPOETIN ALFA
     Indication: NEPHROGENIC ANAEMIA
     Dosage: 0.3 ML, (200 MCG/ML) UNK, UNK
     Route: 058
     Dates: start: 20130816

REACTIONS (1)
  - Death [Fatal]

NARRATIVE: CASE EVENT DATE: 20141125
